FAERS Safety Report 7450828-9 (Version None)
Quarter: 2011Q2

REPORT INFORMATION
  Report Type: 
  Country: None (occurrence: None)
  Receive Date: 20110422
  Receipt Date: 20110414
  Transmission Date: 20111010
  Serious: Yes (Other)
  Sender: FDA-Public Use
  Company Number: 2011SP017123

PATIENT
  Age: 60 Year
  Sex: Female

DRUGS (4)
  1. LORATADINE AND PSEUDOEPHEDRINE SULFATE [Suspect]
     Indication: HYPERSENSITIVITY
     Dates: start: 20110411, end: 20110412
  2. SULTANOL [Concomitant]
  3. CLARITIN [Concomitant]
  4. WICK [Concomitant]

REACTIONS (4)
  - VERTIGO [None]
  - BLOOD PRESSURE INCREASED [None]
  - NAUSEA [None]
  - POSTURAL ORTHOSTATIC TACHYCARDIA SYNDROME [None]
